FAERS Safety Report 25456611 (Version 1)
Quarter: 2025Q2

REPORT INFORMATION
  Report Type: Spontaneous
  Country: US (occurrence: US)
  Receive Date: 20250619
  Receipt Date: 20250619
  Transmission Date: 20250717
  Serious: Yes (Other)
  Sender: PURDUE
  Company Number: US-PURDUE-USA-2025-0318236

PATIENT
  Age: 29 Year
  Sex: Female

DRUGS (1)
  1. MORPHINE SULFATE [Suspect]
     Active Substance: MORPHINE SULFATE
     Indication: Pain
     Route: 065

REACTIONS (5)
  - Seizure [Unknown]
  - Insomnia [Unknown]
  - Nausea [Unknown]
  - Vomiting [Unknown]
  - Inadequate analgesia [Unknown]
